FAERS Safety Report 11177559 (Version 2)
Quarter: 2015Q2

REPORT INFORMATION
  Report Type: Spontaneous
  Country: NL (occurrence: NL)
  Receive Date: 20150610
  Receipt Date: 20150619
  Transmission Date: 20150821
  Serious: Yes (Life-Threatening)
  Sender: FDA-Public Use
  Company Number: NL-NOVOPROD-451491

PATIENT
  Age: 15 Year
  Sex: Female
  Weight: 48 kg

DRUGS (3)
  1. CETURA [Concomitant]
     Indication: TURNER^S SYNDROME
     Dosage: 1 MG, SINGLE
     Route: 048
     Dates: start: 20120301, end: 20140901
  2. FEMOSTON [Concomitant]
     Active Substance: DYDROGESTERONE\ESTRADIOL
     Indication: TURNER^S SYNDROME
     Dosage: 1 MG, SINGLE
     Route: 048
     Dates: start: 20140901
  3. NORDITROPIN [Suspect]
     Active Substance: SOMATROPIN
     Indication: TURNER^S SYNDROME
     Dosage: 2 MG, SINGLE
     Route: 065
     Dates: start: 200808, end: 20141113

REACTIONS (1)
  - Peritoneal mesothelioma malignant [Not Recovered/Not Resolved]
